FAERS Safety Report 11780921 (Version 3)
Quarter: 2016Q1

REPORT INFORMATION
  Report Type: Spontaneous
  Country: FI (occurrence: FI)
  Receive Date: 20151126
  Receipt Date: 20160129
  Transmission Date: 20160525
  Serious: Yes (Other)
  Sender: FDA-Public Use
  Company Number: FI-PFIZER INC-2015312734

PATIENT
  Age: 62 Year
  Sex: Male

DRUGS (4)
  1. LYRICA [Suspect]
     Active Substance: PREGABALIN
     Indication: NEURALGIA
     Dosage: 75 MG, DAILY
     Dates: start: 20150914, end: 20151009
  2. PARA-TABS [Concomitant]
     Active Substance: ACETAMINOPHEN
     Dosage: 1 G X 1-3 DAILY
  3. BURANA [Concomitant]
     Active Substance: IBUPROFEN
     Dosage: 600 MG X 1-3
  4. LYRICA [Suspect]
     Active Substance: PREGABALIN
     Dosage: 150MGX2 EVERY 3 DAYS
     Dates: start: 2015, end: 20151009

REACTIONS (5)
  - Intervertebral disc protrusion [Recovered/Resolved]
  - Visual impairment [Unknown]
  - Condition aggravated [Recovered/Resolved]
  - Discomfort [Recovered/Resolved]
  - Fatigue [Unknown]

NARRATIVE: CASE EVENT DATE: 2015
